FAERS Safety Report 10094470 (Version 1)
Quarter: 2014Q2

REPORT INFORMATION
  Report Type: Spontaneous
  Country: US (occurrence: None)
  Receive Date: 20140421
  Receipt Date: 20140421
  Transmission Date: 20141212
  Serious: Yes (Other)
  Sender: FDA-Public Use
  Company Number: None

PATIENT
  Age: 43 Year
  Sex: Female
  Weight: 70.31 kg

DRUGS (1)
  1. FORFIVO XL [Suspect]
     Indication: DEPRESSION
     Route: 048
     Dates: start: 20131120, end: 20131218

REACTIONS (4)
  - Dry mouth [None]
  - Dizziness [None]
  - Generalised tonic-clonic seizure [None]
  - Fatigue [None]
